FAERS Safety Report 22040299 (Version 1)
Quarter: 2023Q1

REPORT INFORMATION
  Report Type: Spontaneous
  Country: CN (occurrence: None)
  Receive Date: 20230227
  Receipt Date: 20230227
  Transmission Date: 20230418
  Serious: Yes (Other)
  Sender: FDA-Public Use
  Company Number: CN-ROCHE-3289378

PATIENT
  Age: 65 Year
  Sex: Female

DRUGS (2)
  1. POLIVY [Suspect]
     Active Substance: POLATUZUMAB VEDOTIN-PIIQ
     Indication: Diffuse large B-cell lymphoma
     Dosage: D1, 07-MAY-2022, 03-JUN-2022,01-JUL-2022
     Route: 065
     Dates: start: 20220507
  2. BENDAMUSTINE [Concomitant]
     Active Substance: BENDAMUSTINE
     Indication: Diffuse large B-cell lymphoma
     Dosage: D1-D2,07-MAY-2022, 03-JUN-2022,01-JUL-2022
     Route: 065

REACTIONS (3)
  - Myelosuppression [Unknown]
  - Tuberculosis [Unknown]
  - COVID-19 [Unknown]
